FAERS Safety Report 7531434-4 (Version None)
Quarter: 2011Q2

REPORT INFORMATION
  Report Type: 
  Country: None (occurrence: None)
  Receive Date: 20110531
  Receipt Date: 20110518
  Transmission Date: 20111010
  Serious: Yes (Other)
  Sender: FDA-Public Use
  Company Number: 1000017555

PATIENT
  Age: 85 Year
  Sex: Male

DRUGS (7)
  1. MEMANTINE [Suspect]
     Indication: DEMENTIA ALZHEIMER'S TYPE
     Dosage: ORAL
     Route: 048
     Dates: start: 20091201
  2. ASPEGIC (ACETYLSALICYLATE LYSINE) (ACETYLSALICYLATE LYSINE) [Concomitant]
  3. GALANTAMINE HYDROBROMIDE [Suspect]
     Indication: DEMENTIA ALZHEIMER'S TYPE
     Dosage: (1 DOSAGE FORMS), ORAL
     Route: 048
     Dates: start: 20080101
  4. PRAVASTATINE (PRAVASTATIN SODIUM) (PRAVASTATIN SODIUM) [Concomitant]
  5. DEPAMIDE (VALPROMIDE) [Suspect]
     Indication: ABNORMAL BEHAVIOUR
     Dosage: (2 DOSAGE FORMS), ORAL
     Route: 048
     Dates: start: 20100201
  6. TEMESTA (LORAZEPAM) (LORAZEPAM) [Concomitant]
  7. ATENOLOL [Concomitant]

REACTIONS (7)
  - VENOUS THROMBOSIS [None]
  - OEDEMA PERIPHERAL [None]
  - PHLEBITIS [None]
  - PAIN [None]
  - ACTIVITIES OF DAILY LIVING IMPAIRED [None]
  - CONDITION AGGRAVATED [None]
  - MOBILITY DECREASED [None]
